FAERS Safety Report 7283460-0 (Version None)
Quarter: 2011Q1

REPORT INFORMATION
  Report Type: 
  Country: None (occurrence: None)
  Receive Date: 20110204
  Receipt Date: 20110204
  Transmission Date: 20110831
  Serious: Yes (Other)
  Sender: FDA-Public Use
  Company Number: None

PATIENT
  Sex: Female
  Weight: 68.0396 kg

DRUGS (1)
  1. BONIVA [Suspect]
     Indication: PATHOLOGICAL FRACTURE
     Dosage: 150 MG 1 Q MONTH ORAL
     Route: 048
     Dates: start: 20080601, end: 20101001

REACTIONS (6)
  - BONE PAIN [None]
  - MUSCULOSKELETAL CHEST PAIN [None]
  - SPINAL COMPRESSION FRACTURE [None]
  - MUSCULOSKELETAL PAIN [None]
  - COUGH [None]
  - PATHOLOGICAL FRACTURE [None]
